FAERS Safety Report 12591547 (Version 1)
Quarter: 2016Q3

REPORT INFORMATION
  Report Type: Spontaneous
  Country: FR (occurrence: FR)
  Receive Date: 20160726
  Receipt Date: 20160726
  Transmission Date: 20161109
  Serious: Yes (Life-Threatening, Hospitalization)
  Sender: FDA-Public Use
  Company Number: FR-009507513-1407FRA007767

PATIENT
  Age: 38 Year
  Sex: Female

DRUGS (5)
  1. SUFENTA [Concomitant]
     Active Substance: SUFENTANIL CITRATE
     Dosage: UNK
     Route: 042
     Dates: start: 20140516, end: 20140516
  2. BRIDION [Suspect]
     Active Substance: SUGAMMADEX
     Dosage: 1 G, QD; STRENGTH: 100MG/ML
     Route: 042
     Dates: start: 20140516, end: 20140516
  3. SEVORANE [Concomitant]
     Active Substance: SEVOFLURANE
     Dosage: UNK
     Route: 055
     Dates: start: 20140516, end: 20140516
  4. DIPRIVAN [Suspect]
     Active Substance: PROPOFOL
     Dosage: 100 MG, UNK
     Route: 042
     Dates: start: 20140516, end: 20140516
  5. ESMERON [Concomitant]
     Active Substance: ROCURONIUM BROMIDE
     Dosage: UNK
     Route: 042
     Dates: start: 20140516, end: 20140516

REACTIONS (1)
  - Shock [Recovered/Resolved]

NARRATIVE: CASE EVENT DATE: 20140516
